FAERS Safety Report 8641557 (Version 2)
Quarter: 2012Q4

REPORT INFORMATION
  Report Type: 
  Country: JP (occurrence: JP)
  Receive Date: 20120628
  Receipt Date: 20120928
  Transmission Date: 20130627
  Serious: Yes (Hospitalization, Disabling)
  Sender: FDA-Public Use
  Company Number: JP-GLAXOSMITHKLINE-B0807226A

PATIENT
  Age: 80 Year
  Sex: Female
  Weight: 42 kg

DRUGS (2)
  1. HYCAMTIN [Suspect]
     Indication: SMALL CELL LUNG CANCER STAGE UNSPECIFIED
     Dosage: 1MGM2 per day
     Route: 042
     Dates: start: 20120403, end: 20120407
  2. RAMOSETRON HYDROCHLORIDE [Concomitant]
     Indication: PROPHYLAXIS
     Dosage: .3MG per day
     Dates: start: 20120403, end: 20120407

REACTIONS (3)
  - Arthralgia [Recovering/Resolving]
  - Chondrocalcinosis pyrophosphate [Recovering/Resolving]
  - Pain [Unknown]
